FAERS Safety Report 6801624-4 (Version None)
Quarter: 2010Q2

REPORT INFORMATION
  Report Type: 
  Country: None (occurrence: None)
  Receive Date: 20100629
  Receipt Date: 20100625
  Transmission Date: 20101027
  Serious: Yes (Hospitalization, Disabling, Other)
  Sender: FDA-Public Use
  Company Number: US-MERCK-1001USA03515

PATIENT
  Age: 57 Year
  Sex: Female
  Weight: 76 kg

DRUGS (3)
  1. FOSAMAX PLUS D [Suspect]
     Indication: OSTEOPOROSIS
     Route: 048
     Dates: start: 20070724, end: 20080826
  2. FOSAMAX [Suspect]
     Indication: OSTEOPOROSIS
     Route: 048
     Dates: start: 20070901, end: 20080501
  3. CORTICOSTEROIDS (UNSPECIFIED) [Concomitant]
     Route: 065
     Dates: start: 19920101

REACTIONS (31)
  - ABSCESS [None]
  - ABSCESS JAW [None]
  - BONE DISORDER [None]
  - BURSITIS [None]
  - CANDIDIASIS [None]
  - CELLULITIS [None]
  - DIARRHOEA [None]
  - DIARRHOEA INFECTIOUS [None]
  - DYSPNOEA EXERTIONAL [None]
  - FUNGAL INFECTION [None]
  - HAEMATURIA [None]
  - HAEMOGLOBIN DECREASED [None]
  - HYPERTENSION [None]
  - HYPOAESTHESIA [None]
  - LEUKOPENIA [None]
  - LIBIDO DECREASED [None]
  - MOUTH CYST [None]
  - ODONTOGENIC CYST [None]
  - ORAL INFECTION [None]
  - OSTEOARTHRITIS [None]
  - OSTEOMYELITIS [None]
  - OSTEONECROSIS OF JAW [None]
  - OSTEOPENIA [None]
  - PANCYTOPENIA [None]
  - PRESYNCOPE [None]
  - PROTEINURIA [None]
  - PYREXIA [None]
  - RASH [None]
  - RHEUMATOID ARTHRITIS [None]
  - SYSTEMIC LUPUS ERYTHEMATOSUS [None]
  - TOOTHACHE [None]
